FAERS Safety Report 6708972-7 (Version None)
Quarter: 2010Q2

REPORT INFORMATION
  Report Type: 
  Country: None (occurrence: None)
  Receive Date: 20100504
  Receipt Date: 20100421
  Transmission Date: 20101027
  Serious: Yes (Other)
  Sender: FDA-Public Use
  Company Number: PHHY2010AU25029

PATIENT
  Sex: Male

DRUGS (2)
  1. LAMISIL [Suspect]
     Dosage: 250 MG
     Route: 048
     Dates: start: 20100331
  2. ZOLOFT [Concomitant]
     Indication: DEPRESSION
     Dosage: UNK

REACTIONS (4)
  - ANXIETY [None]
  - DEPRESSION [None]
  - MENTAL DISORDER [None]
  - SUICIDAL IDEATION [None]
